FAERS Safety Report 14271953 (Version 1)
Quarter: 2017Q4

REPORT INFORMATION
  Report Type: Report from Study
  Country: JP (occurrence: JP)
  Receive Date: 20171212
  Receipt Date: 20171212
  Transmission Date: 20180321
  Serious: Yes (Hospitalization, Other)
  Sender: FDA-Public Use
  Company Number: JP-ASTELLAS-2009JP001782

PATIENT
  Age: 20 Year
  Sex: Female
  Weight: 60 kg

DRUGS (94)
  1. MEDROL [Suspect]
     Active Substance: METHYLPREDNISOLONE
     Route: 048
     Dates: start: 20090502, end: 20090626
  2. PARIET [Concomitant]
     Active Substance: RABEPRAZOLE SODIUM
     Indication: PROPHYLAXIS
     Route: 048
     Dates: end: 20130221
  3. WARFARIN                           /00014803/ [Concomitant]
     Active Substance: WARFARIN
     Route: 048
     Dates: start: 20090502, end: 20090529
  4. WARFARIN                           /00014803/ [Concomitant]
     Active Substance: WARFARIN
     Route: 048
     Dates: start: 20090530
  5. MICARDIS [Concomitant]
     Active Substance: TELMISARTAN
     Indication: HYPERTENSION
     Route: 048
     Dates: end: 20100122
  6. LASIX [Concomitant]
     Active Substance: FUROSEMIDE
     Indication: PRODUCT USED FOR UNKNOWN INDICATION
     Route: 048
     Dates: start: 20090128, end: 20090304
  7. PL [Concomitant]
     Active Substance: ACETAMINOPHEN\CAFFEINE\PROMETHAZINE\SALICYLAMIDE
     Indication: WHITE BLOOD CELL COUNT DECREASED
     Route: 048
     Dates: start: 20110905, end: 20110912
  8. KAYTWO N [Concomitant]
     Active Substance: MENATETRENONE
     Indication: HAEMORRHAGIC DIATHESIS
     Route: 065
     Dates: start: 20090908, end: 20090908
  9. LAMISIL [Concomitant]
     Active Substance: TERBINAFINE HYDROCHLORIDE
     Indication: ANTIFUNGAL PROPHYLAXIS
     Route: 048
     Dates: end: 20100819
  10. SENNAL [Concomitant]
     Indication: CONSTIPATION
     Route: 048
     Dates: start: 20111007, end: 20111116
  11. ZITHROMAC [Concomitant]
     Active Substance: AZITHROMYCIN DIHYDRATE
     Indication: WHITE BLOOD CELL COUNT DECREASED
  12. RINDERON VG [Concomitant]
     Active Substance: BETAMETHASONE VALERATE\GENTAMICIN SULFATE
     Indication: ECZEMA
     Dosage: APPROPRIATE DOSE
     Route: 061
     Dates: start: 20121026, end: 20121121
  13. MEDROL [Suspect]
     Active Substance: METHYLPREDNISOLONE
     Route: 048
     Dates: start: 20081203
  14. MEDROL [Suspect]
     Active Substance: METHYLPREDNISOLONE
     Route: 048
     Dates: start: 20090129, end: 20090304
  15. CRAVIT [Suspect]
     Active Substance: LEVOFLOXACIN
     Indication: TONSILLITIS
     Dosage: UNK UNK, UNKNOWN FREQ.
     Route: 048
  16. WARFARIN                           /00014803/ [Concomitant]
     Active Substance: WARFARIN
     Route: 048
     Dates: start: 20090128, end: 20090501
  17. WARFARIN                           /00014803/ [Concomitant]
     Active Substance: WARFARIN
     Route: 048
     Dates: start: 20090822, end: 20090908
  18. WARFARIN                           /00014803/ [Concomitant]
     Active Substance: WARFARIN
     Route: 048
     Dates: end: 20100123
  19. ACTONEL [Concomitant]
     Active Substance: RISEDRONATE SODIUM
     Route: 048
     Dates: start: 20101113, end: 20130221
  20. PONSTEL [Concomitant]
     Active Substance: MEFENAMIC ACID
     Indication: ENTEROCOLITIS
     Dosage: UNK UNK, UNKNOWN FREQ.
     Route: 048
  21. TRANSAMIN [Concomitant]
     Active Substance: TRANEXAMIC ACID
     Indication: UPPER RESPIRATORY TRACT INFLAMMATION
     Route: 048
     Dates: start: 20120904, end: 20120910
  22. PRIMPERAN [Concomitant]
     Active Substance: METOCLOPRAMIDE HYDROCHLORIDE
     Indication: DIZZINESS
     Route: 048
  23. MUCODYNE [Concomitant]
     Active Substance: CARBOCYSTEINE
     Indication: ENTEROCOLITIS
     Dosage: UNK UNK, UNKNOWN FREQ.
     Route: 048
  24. FERROMIA [Concomitant]
     Active Substance: SODIUM FERROUS CITRATE
     Indication: IRON DEFICIENCY ANAEMIA
     Route: 048
     Dates: start: 20091030, end: 20110812
  25. LOXONIN [Concomitant]
     Active Substance: LOXOPROFEN SODIUM
     Indication: PAIN IN EXTREMITY
     Dosage: UNK UNK, UNKNOWN FREQ.
     Route: 048
  26. LOXONIN [Concomitant]
     Active Substance: LOXOPROFEN SODIUM
     Indication: PAIN IN EXTREMITY
     Route: 048
  27. SOLITA-T3 [Concomitant]
     Active Substance: POTASSIUM CHLORIDE\SODIUM CHLORIDE\SODIUM LACTATE
     Indication: TONSILLITIS
     Route: 041
  28. CALFINA [Concomitant]
     Active Substance: ALFACALCIDOL
     Indication: PRODUCT USED FOR UNKNOWN INDICATION
     Route: 048
     Dates: start: 20110205, end: 20120812
  29. PLETAAL [Suspect]
     Active Substance: CILOSTAZOL
     Route: 048
     Dates: start: 20100123, end: 20100203
  30. MEDROL [Suspect]
     Active Substance: METHYLPREDNISOLONE
     Route: 048
     Dates: start: 20091226, end: 20100326
  31. CRAVIT [Suspect]
     Active Substance: LEVOFLOXACIN
     Indication: URINARY TRACT INFECTION
     Route: 048
     Dates: start: 20090626, end: 20090630
  32. FUNGIZONE [Concomitant]
     Active Substance: AMPHOTERICIN B
     Indication: PROPHYLAXIS
     Route: 048
  33. FUNGIZONE [Concomitant]
     Active Substance: AMPHOTERICIN B
     Route: 048
     Dates: end: 20090821
  34. ACTONEL [Concomitant]
     Active Substance: RISEDRONATE SODIUM
     Indication: OSTEOPOROSIS
     Route: 048
     Dates: start: 20081008, end: 20100326
  35. PREDNISOLONE. [Concomitant]
     Active Substance: PREDNISOLONE
     Route: 048
     Dates: start: 20100529, end: 20100723
  36. PREDNISOLONE. [Concomitant]
     Active Substance: PREDNISOLONE
     Route: 048
     Dates: start: 20120526, end: 20121026
  37. PRIMPERAN [Concomitant]
     Active Substance: METOCLOPRAMIDE HYDROCHLORIDE
     Indication: GASTROENTERITIS VIRAL
     Route: 048
     Dates: start: 20121121, end: 20121124
  38. SOLITA-T3 [Concomitant]
     Active Substance: POTASSIUM CHLORIDE\SODIUM CHLORIDE\SODIUM LACTATE
     Indication: GASTROENTERITIS
     Route: 041
  39. OZEX                               /01070602/ [Concomitant]
     Active Substance: TOSUFLOXACIN TOSYLATE
     Indication: UPPER RESPIRATORY TRACT INFLAMMATION
     Route: 048
     Dates: start: 20120904, end: 20120910
  40. CRAVIT [Suspect]
     Active Substance: LEVOFLOXACIN
     Indication: ENTEROCOLITIS
     Route: 048
     Dates: start: 20090917, end: 20090923
  41. WARFARIN                           /00014803/ [Concomitant]
     Active Substance: WARFARIN
     Indication: THROMBOSIS PROPHYLAXIS
     Route: 048
  42. EVAMYL [Concomitant]
     Active Substance: LORMETAZEPAM
     Indication: INSOMNIA
     Route: 048
     Dates: end: 20081008
  43. TRANSAMIN [Concomitant]
     Active Substance: TRANEXAMIC ACID
     Indication: TONSILLITIS
     Route: 048
  44. PL [Concomitant]
     Active Substance: ACETAMINOPHEN\CAFFEINE\PROMETHAZINE\SALICYLAMIDE
     Indication: GASTROENTERITIS
     Route: 048
     Dates: start: 20090128, end: 20090203
  45. PREDNISOLONE. [Concomitant]
     Active Substance: PREDNISOLONE
     Route: 048
     Dates: start: 20120128, end: 20120525
  46. MUCODYNE [Concomitant]
     Active Substance: CARBOCYSTEINE
     Indication: UPPER RESPIRATORY TRACT INFLAMMATION
     Route: 048
     Dates: start: 20120904, end: 20120910
  47. ONEALFA [Concomitant]
     Active Substance: ALFACALCIDOL
     Indication: PRODUCT USED FOR UNKNOWN INDICATION
     Route: 048
     Dates: start: 20100326, end: 20110204
  48. FERROMIA [Concomitant]
     Active Substance: SODIUM FERROUS CITRATE
     Route: 048
     Dates: start: 20121026, end: 20130221
  49. PREDNISOLONE SODIUM SUCCINATE [Concomitant]
     Active Substance: PREDNISOLONE SODIUM SUCCINATE
     Indication: DIZZINESS
     Route: 041
     Dates: start: 20100824, end: 20100824
  50. AMIKACIN SULFATE. [Concomitant]
     Active Substance: AMIKACIN SULFATE
     Indication: TONSILLITIS
     Route: 041
  51. TACROLIMUS. [Suspect]
     Active Substance: TACROLIMUS
     Indication: LUPUS NEPHRITIS
     Route: 048
     Dates: start: 20080716, end: 20130221
  52. MEDROL [Suspect]
     Active Substance: METHYLPREDNISOLONE
     Route: 048
     Dates: start: 20090305, end: 20090501
  53. CRAVIT [Suspect]
     Active Substance: LEVOFLOXACIN
     Indication: TONSILLITIS
     Dosage: UNK UNK, UNKNOWN FREQ.
     Route: 048
  54. CRAVIT [Suspect]
     Active Substance: LEVOFLOXACIN
     Indication: GASTROENTERITIS VIRAL
     Route: 048
     Dates: start: 20110901, end: 20110905
  55. BAYASPIRIN [Concomitant]
     Active Substance: ASPIRIN
     Indication: PRODUCT USED FOR UNKNOWN INDICATION
     Route: 048
     Dates: end: 20130221
  56. PREDNISOLONE. [Concomitant]
     Active Substance: PREDNISOLONE
     Indication: LUPUS NEPHRITIS
     Route: 048
     Dates: start: 20091226, end: 20100122
  57. PREDNISOLONE. [Concomitant]
     Active Substance: PREDNISOLONE
     Route: 048
     Dates: start: 20100123, end: 20100219
  58. PREDNISOLONE. [Concomitant]
     Active Substance: PREDNISOLONE
     Route: 048
     Dates: start: 20130225
  59. PRIMPERAN [Concomitant]
     Active Substance: METOCLOPRAMIDE HYDROCHLORIDE
     Indication: GASTROENTERITIS
     Route: 048
  60. PLETAAL [Concomitant]
     Active Substance: CILOSTAZOL
     Indication: PAIN IN EXTREMITY
     Route: 048
     Dates: start: 20110204, end: 20110707
  61. PLETAAL [Concomitant]
     Active Substance: CILOSTAZOL
     Route: 048
     Dates: start: 20110708, end: 20130221
  62. PRIMPERAN [Concomitant]
     Active Substance: METOCLOPRAMIDE HYDROCHLORIDE
     Indication: DIZZINESS
     Route: 041
     Dates: start: 20100824, end: 20100824
  63. SP                                 /00148702/ [Concomitant]
     Indication: UPPER RESPIRATORY TRACT INFLAMMATION
     Route: 048
     Dates: start: 20120904, end: 20120910
  64. MEDROL [Suspect]
     Active Substance: METHYLPREDNISOLONE
     Indication: LUPUS NEPHRITIS
     Route: 048
     Dates: end: 20080812
  65. MEDROL [Suspect]
     Active Substance: METHYLPREDNISOLONE
     Route: 048
     Dates: start: 20080813, end: 20081007
  66. MEDROL [Suspect]
     Active Substance: METHYLPREDNISOLONE
     Route: 048
     Dates: start: 20081008, end: 20081202
  67. MEDROL [Suspect]
     Active Substance: METHYLPREDNISOLONE
     Route: 048
     Dates: start: 20100327, end: 20120127
  68. MEDROL [Suspect]
     Active Substance: METHYLPREDNISOLONE
     Route: 048
     Dates: start: 20120128, end: 20130225
  69. BAKTAR [Concomitant]
     Active Substance: SULFAMETHOXAZOLE\TRIMETHOPRIM
     Indication: PROPHYLAXIS
     Dosage: 2 DF, THRICE WEEKLY (MON, WED, FRI)
     Route: 048
     Dates: end: 201011
  70. PONSTEL [Concomitant]
     Active Substance: MEFENAMIC ACID
     Indication: TONSILLITIS
     Dosage: UNK UNK, UNKNOWN FREQ.
     Route: 048
  71. TRANSAMIN [Concomitant]
     Active Substance: TRANEXAMIC ACID
     Indication: TONSILLITIS
     Dosage: UNK UNK, UNKNOWN FREQ.
     Route: 048
  72. PL [Concomitant]
     Active Substance: ACETAMINOPHEN\CAFFEINE\PROMETHAZINE\SALICYLAMIDE
     Indication: UPPER RESPIRATORY TRACT INFLAMMATION
     Route: 048
  73. SOLETON [Concomitant]
     Active Substance: ZALTOPROFEN
     Indication: TONSILLITIS
     Route: 065
  74. MEDICON                            /00048102/ [Concomitant]
     Active Substance: DEXTROMETHORPHAN HYDROBROMIDE
     Indication: UPPER RESPIRATORY TRACT INFLAMMATION
     Route: 048
     Dates: start: 20110905, end: 20110912
  75. PLETAAL [Suspect]
     Active Substance: CILOSTAZOL
     Indication: PRODUCT USED FOR UNKNOWN INDICATION
     Route: 048
     Dates: end: 20081008
  76. CRAVIT [Suspect]
     Active Substance: LEVOFLOXACIN
     Route: 048
     Dates: start: 20121121, end: 20121124
  77. WARFARIN                           /00014803/ [Concomitant]
     Active Substance: WARFARIN
     Route: 048
     Dates: end: 20090821
  78. FLOMOX                             /01418603/ [Concomitant]
     Active Substance: CEFCAPENE PIVOXIL HYDROCHLORIDE HYDRATE
     Indication: UPPER RESPIRATORY TRACT INFLAMMATION
     Route: 048
     Dates: start: 20090128, end: 20090203
  79. PREDNISOLONE. [Concomitant]
     Active Substance: PREDNISOLONE
     Route: 048
     Dates: start: 20100327, end: 20100528
  80. SUMILU [Concomitant]
     Active Substance: FELBINAC
     Indication: MUSCULOSKELETAL STIFFNESS
     Dosage: APPROPRIATE DOSE
     Route: 061
     Dates: start: 20100917, end: 20101112
  81. ZITHROMAC [Concomitant]
     Active Substance: AZITHROMYCIN DIHYDRATE
     Indication: UPPER RESPIRATORY TRACT INFLAMMATION
     Route: 048
     Dates: start: 20110906, end: 20110908
  82. MEDICON                            /00048102/ [Concomitant]
     Active Substance: DEXTROMETHORPHAN HYDROBROMIDE
     Indication: WHITE BLOOD CELL COUNT DECREASED
  83. MEDROL [Suspect]
     Active Substance: METHYLPREDNISOLONE
     Route: 048
     Dates: start: 20090627, end: 20090925
  84. MEDROL [Suspect]
     Active Substance: METHYLPREDNISOLONE
     Route: 048
     Dates: start: 20090926, end: 20091225
  85. CRAVIT [Suspect]
     Active Substance: LEVOFLOXACIN
     Indication: UPPER RESPIRATORY TRACT INFLAMMATION
     Route: 048
  86. WARFARIN                           /00014803/ [Concomitant]
     Active Substance: WARFARIN
     Route: 048
     Dates: start: 20090911
  87. MICARDIS [Concomitant]
     Active Substance: TELMISARTAN
     Route: 048
     Dates: start: 20100123, end: 20101112
  88. MICARDIS [Concomitant]
     Active Substance: TELMISARTAN
     Route: 048
     Dates: start: 20101113, end: 20110812
  89. LAC B [Concomitant]
     Active Substance: BIFIDOBACTERIUM SPP.
     Indication: ENTEROCOLITIS
     Route: 048
     Dates: start: 20090917, end: 20090923
  90. LAC B [Concomitant]
     Active Substance: BIFIDOBACTERIUM SPP.
     Indication: GASTROENTERITIS
     Route: 048
  91. PRIMPERAN [Concomitant]
     Active Substance: METOCLOPRAMIDE HYDROCHLORIDE
     Indication: ENTEROCOLITIS
     Route: 048
     Dates: start: 20090917, end: 20090923
  92. VEEN D [Concomitant]
     Active Substance: CALCIUM CHLORIDE\DEXTROSE\POTASSIUM CHLORIDE\SODIUM ACETATE\SODIUM CHLORIDE
     Indication: DIZZINESS
     Route: 041
     Dates: start: 20100824
  93. PRIMPERAN [Concomitant]
     Active Substance: METOCLOPRAMIDE HYDROCHLORIDE
     Indication: GASTROENTERITIS
     Route: 041
  94. LOXONIN [Concomitant]
     Active Substance: LOXOPROFEN SODIUM
     Indication: UPPER RESPIRATORY TRACT INFLAMMATION
     Route: 048
     Dates: start: 20110905, end: 20110912

REACTIONS (20)
  - Dizziness [Recovered/Resolved]
  - Upper respiratory tract inflammation [Recovered/Resolved]
  - Urinary tract infection [Recovered/Resolved]
  - Eczema [Recovered/Resolved]
  - Gingival bleeding [Recovered/Resolved]
  - Exposure during pregnancy [Unknown]
  - Dental caries [Recovered/Resolved]
  - Gastroenteritis [Recovered/Resolved]
  - Eczema [Recovered/Resolved]
  - Tonsillitis [Recovered/Resolved]
  - Iron deficiency anaemia [Recovered/Resolved]
  - Musculoskeletal stiffness [Recovered/Resolved]
  - Myalgia [Recovered/Resolved]
  - Enterocolitis [Recovered/Resolved]
  - White blood cell count decreased [Recovered/Resolved]
  - Constipation [Recovered/Resolved]
  - Haemorrhagic diathesis [Recovered/Resolved]
  - Tonsillitis [Recovered/Resolved]
  - Pain in extremity [Recovered/Resolved]
  - Gastroenteritis viral [Recovered/Resolved]

NARRATIVE: CASE EVENT DATE: 20081008
